FAERS Safety Report 5867164-4 (Version None)
Quarter: 2008Q3

REPORT INFORMATION
  Report Type: 
  Country: None (occurrence: None)
  Receive Date: 20080829
  Receipt Date: 20080829
  Transmission Date: 20090109
  Serious: Yes (Hospitalization)
  Sender: FDA-Public Use
  Company Number: None

PATIENT
  Sex: Female
  Weight: 72.5755 kg

DRUGS (1)
  1. ZETIA [Suspect]
     Indication: BLOOD CHOLESTEROL INCREASED
     Dosage: 1 TABLET DAILY
     Dates: start: 20080626, end: 20080728

REACTIONS (12)
  - ARTHRALGIA [None]
  - ASTHENIA [None]
  - BONE PAIN [None]
  - DRUG HYPERSENSITIVITY [None]
  - DYSSTASIA [None]
  - FALL [None]
  - HEADACHE [None]
  - LABORATORY TEST ABNORMAL [None]
  - LACRIMATION INCREASED [None]
  - MUSCULOSKELETAL PAIN [None]
  - RHABDOMYOLYSIS [None]
  - SCREAMING [None]
